FAERS Safety Report 14160973 (Version 1)
Quarter: 2017Q4

REPORT INFORMATION
  Report Type: Spontaneous
  Country: US (occurrence: US)
  Receive Date: 20171106
  Receipt Date: 20171106
  Transmission Date: 20180321
  Serious: No
  Sender: FDA-Public Use
  Company Number: US-PFIZER INC-2017473763

PATIENT
  Age: 70 Year
  Sex: Female

DRUGS (46)
  1. INLYTA [Suspect]
     Active Substance: AXITINIB
     Indication: RENAL CELL CARCINOMA
     Dosage: 3 MG, 2X/DAY (Q12H) WITH PLENTY OF WATER
     Route: 048
     Dates: start: 20171010
  2. NOVOLOG [Concomitant]
     Active Substance: INSULIN ASPART
     Dosage: 34 IU, AS NEEDED AC PLUS SLIDING SCALE)
     Route: 058
     Dates: start: 20120410
  3. LEVOTHYROXINE. [Concomitant]
     Active Substance: LEVOTHYROXINE
     Dosage: 112 UG, DAILY
     Route: 048
     Dates: start: 20171024
  4. MAGNESIUM OXIDE. [Concomitant]
     Active Substance: MAGNESIUM OXIDE
     Dosage: 1 DF, 2X/DAY
     Route: 048
     Dates: start: 20170102
  5. METOPROLOL TARTRATE. [Concomitant]
     Active Substance: METOPROLOL TARTRATE
     Dosage: 150 MG, 2X/DAY (1.5 TABS)
     Route: 048
     Dates: start: 20130305
  6. NYSTATIN W/TRIAMCINOLONE [Concomitant]
     Indication: RASH
     Dosage: UNK, AS NEEDED (DAILY, PRN: RASH)
     Route: 061
     Dates: start: 20150713
  7. NYSTATIN W/TRIAMCINOLONE [Concomitant]
     Dosage: 2X/DAY (100,000 UNITS/G - 0.1%) 1 APPL, TOPICAL, BID (FOR TWO WEEKS)
     Route: 061
     Dates: start: 20170914
  8. VITAMIN D3 [Concomitant]
     Active Substance: CHOLECALCIFEROL
     Dosage: 1 DF, DAILY
     Route: 048
     Dates: start: 20120410
  9. HYDROCHLOROTHIAZIDE. [Concomitant]
     Active Substance: HYDROCHLOROTHIAZIDE
     Dosage: 25 MG, DAILY
     Route: 048
     Dates: start: 20150713
  10. PREDNISONE. [Concomitant]
     Active Substance: PREDNISONE
     Dosage: 15 MG, (3 TABS FOR 2 WEEKS)
     Dates: start: 20170522
  11. PREDNISONE. [Concomitant]
     Active Substance: PREDNISONE
     Dosage: 10 MG, (2 TABS FOR 2 WEEKS)
  12. VITAMIN C [Concomitant]
     Active Substance: ASCORBIC ACID
     Dosage: 500 MG, DAILY
     Route: 048
     Dates: start: 20120410
  13. DOXYCYCLINE HYCLATE. [Concomitant]
     Active Substance: DOXYCYCLINE HYCLATE
     Dosage: 1 DF, DAILY
     Route: 048
     Dates: start: 20170522
  14. FENOFIBRATE. [Concomitant]
     Active Substance: FENOFIBRATE
     Dosage: 1 DF, DAILY
     Route: 048
     Dates: start: 20171016
  15. LANTUS [Concomitant]
     Active Substance: INSULIN GLARGINE
     Dosage: 86 IU, 1X/DAY (QHS)
     Route: 058
     Dates: start: 20120410
  16. MAGNESIUM OXIDE. [Concomitant]
     Active Substance: MAGNESIUM OXIDE
     Dosage: 1 DF, 3X/DAY
     Route: 048
     Dates: start: 20170102
  17. OMEPRAZOLE. [Concomitant]
     Active Substance: OMEPRAZOLE
     Dosage: 20 MG, 1X/DAY (QAM)
     Route: 048
     Dates: start: 20171024
  18. PREDNISONE. [Concomitant]
     Active Substance: PREDNISONE
     Dosage: 2 MG,  (FOR 2 WEEKS)
     Route: 048
  19. PREDNISONE. [Concomitant]
     Active Substance: PREDNISONE
     Dosage: 20 MG, UNTIL SEE RHEUMATOLOGY
  20. PREDNISONE. [Concomitant]
     Active Substance: PREDNISONE
     Dosage: 40 MG, DAILY (Q24H) WITH FOOD OR MILK
     Dates: start: 20170505, end: 20170508
  21. SPIRONOLACTONE. [Concomitant]
     Active Substance: SPIRONOLACTONE
     Dosage: 1 DF, 4X/DAY
     Route: 048
     Dates: start: 20120410
  22. TYLENOL [Concomitant]
     Active Substance: ACETAMINOPHEN
     Dosage: 650 MG, 4X/DAY
     Route: 048
     Dates: start: 20170130
  23. VITAMIN B12 [Concomitant]
     Active Substance: CYANOCOBALAMIN
     Dosage: 1000 UG, DAILY
     Route: 048
     Dates: start: 20171024
  24. HYDRALAZINE [Concomitant]
     Active Substance: HYDRALAZINE HYDROCHLORIDE
     Dosage: 1 DF, 3X/DAY
     Route: 048
     Dates: start: 20130305
  25. PRAVASTATIN. [Concomitant]
     Active Substance: PRAVASTATIN
     Dosage: 20 G, 1X/DAY (QSH)
     Route: 048
     Dates: start: 20171016
  26. PREDNISONE. [Concomitant]
     Active Substance: PREDNISONE
     Dosage: 1 MG,  (FOR 2 WEEKS)
     Route: 048
  27. PREDNISONE. [Concomitant]
     Active Substance: PREDNISONE
     Dosage: 30 MG, UNK
     Route: 048
     Dates: start: 20170508, end: 20170522
  28. COMPAZINE [Concomitant]
     Active Substance: PROCHLORPERAZINE MALEATE
     Indication: NAUSEA
     Dosage: 1 DF, AS NEEDED (Q6H)
     Route: 048
     Dates: start: 20161221
  29. VITAMIN E [Concomitant]
     Active Substance: .ALPHA.-TOCOPHEROL
     Dosage: 500 IU, DAILY
     Route: 048
     Dates: start: 20120410
  30. VITAMIN C [Concomitant]
     Active Substance: ASCORBIC ACID
     Dosage: 500 MG, DAILY
     Route: 048
     Dates: start: 20171024
  31. BETAMETHASONE DIPROPIONATE. [Concomitant]
     Active Substance: BETAMETHASONE DIPROPIONATE
     Dosage: UNK, CYCLIC (APPLY TO HANDS AND FEET TWICE A DAY FOR 2 WEEKS THEN THREE TIMES A WEEK AS NEEDED)
     Route: 061
     Dates: start: 20170914
  32. CLINDAMYCIN. [Concomitant]
     Active Substance: CLINDAMYCIN
     Indication: PROPHYLAXIS
     Dosage: 4 DF, UNK
     Route: 048
     Dates: start: 20171024
  33. FLUCONAZOLE. [Concomitant]
     Active Substance: FLUCONAZOLE
     Dosage: 200 MG, (DAY 1)
     Route: 048
     Dates: start: 20170828
  34. PREDNISONE. [Concomitant]
     Active Substance: PREDNISONE
     Dosage: 4 MG, (FOR 2 WEEKS)
     Route: 048
     Dates: start: 20170808
  35. VITAMIN A [Concomitant]
     Active Substance: VITAMIN A
     Dosage: 1 DF, DAILY (WITH D3)
     Route: 048
     Dates: start: 20171024
  36. ASPIRIN. [Concomitant]
     Active Substance: ASPIRIN
     Dosage: 81 MG, DAILY
     Route: 048
     Dates: start: 20161208
  37. ATROPINE W/DIPHENOXYLATE [Concomitant]
     Active Substance: ATROPINE\DIPHENOXYLATE
     Indication: DIARRHOEA
     Dosage: UNK, AS NEEDED (1 TAB TID)
     Route: 048
     Dates: start: 20171018
  38. NULYTELY [Concomitant]
     Active Substance: POLYETHYLENE GLYCOL 3350\POTASSIUM CHLORIDE\SODIUM BICARBONATE\SODIUM CHLORIDE
     Dosage: UNK (DISP# L EACH, REFILLS: 0, SPLIT PREP FOR COLONOSCOPY)
     Dates: start: 20171024
  39. PREDNISONE. [Concomitant]
     Active Substance: PREDNISONE
     Dosage: 3 MG, (FOR 2 WEEKS)
     Route: 048
  40. PREDNISONE. [Concomitant]
     Active Substance: PREDNISONE
     Dosage: UNK (5, 4 TABS FOR 2 WEEKS)
     Dates: start: 20170522
  41. CALCIUM CITRATE [Concomitant]
     Active Substance: CALCIUM CITRATE
     Dosage: 500 MG, DAILY
     Route: 048
     Dates: start: 20120410
  42. FLUCONAZOLE. [Concomitant]
     Active Substance: FLUCONAZOLE
     Dosage: 100 MG, (9 DAYS-TOTAL OF 10 DAYS)
     Route: 048
  43. GLIMEPIRIDE. [Concomitant]
     Active Substance: GLIMEPIRIDE
     Dosage: 1 MG, 2X/DAY
     Route: 048
     Dates: start: 20161206
  44. COZAAR [Concomitant]
     Active Substance: LOSARTAN POTASSIUM
     Dosage: 1 DF, DAILY
     Route: 048
     Dates: start: 20120410
  45. METFORMIN [Concomitant]
     Active Substance: METFORMIN HYDROCHLORIDE
     Dosage: 1 DF, 2X/DAY
     Route: 048
     Dates: start: 20120410
  46. NYSTATIN W/TRIAMCINOLONE [Concomitant]
     Dosage: AS NEEDED (100,000 UNITS/G - 0.1%) 1 APPL, TOPICAL, BID (FOR TWO WEEKS) THREE TIMES A WEEK

REACTIONS (1)
  - Drug intolerance [Unknown]
